FAERS Safety Report 18650320 (Version 1)
Quarter: 2020Q4

REPORT INFORMATION
  Report Type: Report from Study
  Country: US (occurrence: US)
  Receive Date: 20201222
  Receipt Date: 20201222
  Transmission Date: 20210114
  Serious: Yes (Death, Other)
  Sender: FDA-Public Use
  Company Number: US-ASTRAZENECA-2020SF70822

PATIENT
  Age: 34156 Day
  Sex: Male

DRUGS (14)
  1. HYDRALAZINE [Concomitant]
     Active Substance: HYDRALAZINE HYDROCHLORIDE
  2. DOCUSATE [Concomitant]
     Active Substance: DOCUSATE
  3. CALQUENCE [Suspect]
     Active Substance: ACALABRUTINIB
     Indication: LYMPHOMA
     Route: 048
  4. ALLEGRA [Concomitant]
     Active Substance: FEXOFENADINE HYDROCHLORIDE
  5. METOPROLOL. [Suspect]
     Active Substance: METOPROLOL
     Dosage: UNKNOWN
     Route: 065
  6. ELIQUIS [Concomitant]
     Active Substance: APIXABAN
  7. OCUVITE [Concomitant]
     Active Substance: VITAMINS
  8. IPRATROPIUM [Concomitant]
     Active Substance: IPRATROPIUM
  9. DESLORATADINE. [Concomitant]
     Active Substance: DESLORATADINE
  10. LOVASTATIN. [Concomitant]
     Active Substance: LOVASTATIN
  11. ASPIRIN. [Concomitant]
     Active Substance: ASPIRIN
  12. ISOSORBIDE. [Concomitant]
     Active Substance: ISOSORBIDE
  13. PROCHLORPERAZINE. [Concomitant]
     Active Substance: PROCHLORPERAZINE
  14. NITROSTAT [Concomitant]
     Active Substance: NITROGLYCERIN

REACTIONS (3)
  - Pneumonia [Unknown]
  - Fall [Unknown]
  - Death [Fatal]

NARRATIVE: CASE EVENT DATE: 20201212
